FAERS Safety Report 4862693-4 (Version None)
Quarter: 2005Q4

REPORT INFORMATION
  Report Type: 
  Country: None (occurrence: None)
  Receive Date: 20051221
  Receipt Date: 20051005
  Transmission Date: 20060501
  Serious: Yes (Disabling)
  Sender: FDA-Public Use
  Company Number: US-MERCK-0510USA05344

PATIENT
  Age: 60 Year
  Sex: Male
  Weight: 77 kg

DRUGS (11)
  1. VIOXX [Suspect]
     Indication: PAIN
     Route: 048
     Dates: start: 20020901, end: 20021101
  2. VIOXX [Suspect]
     Route: 048
     Dates: start: 20020901, end: 20021101
  3. ALLOPURINOL MSD [Concomitant]
     Route: 065
  4. ISOSORBIDE [Concomitant]
     Route: 065
  5. MAVIK [Concomitant]
     Route: 065
  6. METOPROLOL [Concomitant]
     Route: 065
  7. LIPITOR [Concomitant]
     Route: 065
  8. NORVASC [Concomitant]
     Route: 065
  9. NIASPAN [Concomitant]
     Route: 065
  10. NITROQUICK [Concomitant]
     Route: 065
  11. ASPIRIN [Concomitant]
     Route: 065

REACTIONS (2)
  - ARTERIAL OCCLUSIVE DISEASE [None]
  - CARDIAC DISORDER [None]
